FAERS Safety Report 19229960 (Version 1)
Quarter: 2021Q2

REPORT INFORMATION
  Report Type: Report from Study
  Country: None (occurrence: RO)
  Receive Date: 20210506
  Receipt Date: 20210506
  Transmission Date: 20210717
  Serious: Yes (Disabling)
  Sender: FDA-Public Use
  Company Number: RO-ABBVIE-21K-135-3891783-00

PATIENT
  Age: 50 Year
  Sex: Female

DRUGS (2)
  1. EXVIERA [Suspect]
     Active Substance: DASABUVIR
     Indication: CHRONIC HEPATITIS C
     Route: 048
     Dates: start: 20201113, end: 20210107
  2. VIEKIRAX [Suspect]
     Active Substance: OMBITASVIR\PARITAPREVIR\RITONAVIR
     Indication: CHRONIC HEPATITIS C
     Route: 048
     Dates: start: 20201113, end: 20210107

REACTIONS (2)
  - Mobility decreased [Recovered/Resolved]
  - Road traffic accident [Unknown]

NARRATIVE: CASE EVENT DATE: 202103
